FAERS Safety Report 17025978 (Version 1)
Quarter: 2019Q4

REPORT INFORMATION
  Report Type: Other
  Country: FR (occurrence: FR)
  Receive Date: 20191113
  Receipt Date: 20191113
  Transmission Date: 20200122
  Serious: Yes (Hospitalization, Other)
  Sender: FDA-Public Use
  Company Number: FR-BIODELIVERY SCIENCES INTERNATIONAL-2019BDSI0896

PATIENT
  Age: 21 Week
  Sex: Male

DRUGS (2)
  1. ALPRAZOLAM. [Suspect]
     Active Substance: ALPRAZOLAM
     Indication: PRODUCT USED FOR UNKNOWN INDICATION
     Route: 065
  2. FENTANYL CITRATE. [Suspect]
     Active Substance: FENTANYL CITRATE
     Indication: PRODUCT USED FOR UNKNOWN INDICATION
     Route: 065

REACTIONS (3)
  - Magnetic resonance imaging abnormal [Recovered/Resolved]
  - Amnestic disorder [Recovered/Resolved]
  - Overdose [Recovered/Resolved]
